FAERS Safety Report 14513517 (Version 1)
Quarter: 2018Q1

REPORT INFORMATION
  Report Type: Spontaneous
  Country: US (occurrence: US)
  Receive Date: 20180208
  Receipt Date: 20180208
  Transmission Date: 20180509
  Serious: No
  Sender: FDA-Public Use
  Company Number: None

PATIENT
  Sex: Female
  Weight: 76.05 kg

DRUGS (6)
  1. DULOXETINE. [Concomitant]
     Active Substance: DULOXETINE
  2. ATORVASTATIN [Concomitant]
     Active Substance: ATORVASTATIN
  3. SYNTHROID [Concomitant]
     Active Substance: LEVOTHYROXINE SODIUM
  4. TUBERSOL [Suspect]
     Active Substance: TUBERCULIN PURIFIED PROTEIN DERIVATIVE
     Indication: TUBERCULIN TEST
     Dosage: ?          QUANTITY:0.01 INJECTION(S);OTHER FREQUENCY:ONCE;?
     Route: 058
     Dates: start: 20180206, end: 20180206
  5. GABAPENTIN. [Concomitant]
     Active Substance: GABAPENTIN
  6. MULTI VITAMIN [Concomitant]
     Active Substance: VITAMINS

REACTIONS (2)
  - Asthenia [None]
  - Dysgeusia [None]

NARRATIVE: CASE EVENT DATE: 20180206
